FAERS Safety Report 22607383 (Version 1)
Quarter: 2023Q2

REPORT INFORMATION
  Report Type: Spontaneous
  Country: US (occurrence: None)
  Receive Date: 20230616
  Receipt Date: 20230616
  Transmission Date: 20230721
  Serious: No
  Sender: FDA-Public Use
  Company Number: 2023A136521

PATIENT

DRUGS (1)
  1. FASENRA [Suspect]
     Active Substance: BENRALIZUMAB
     Dosage: UNKNOWN
     Route: 058
     Dates: start: 20230123

REACTIONS (5)
  - Limb injury [Unknown]
  - Mycotic allergy [Unknown]
  - Drug ineffective [Unknown]
  - Seasonal allergy [Unknown]
  - Dyspnoea [Unknown]
